FAERS Safety Report 13814978 (Version 1)
Quarter: 2017Q3

REPORT INFORMATION
  Report Type: Spontaneous
  Country: DE (occurrence: DE)
  Receive Date: 20170731
  Receipt Date: 20170731
  Transmission Date: 20171127
  Serious: Yes (Other)
  Sender: FDA-Public Use
  Company Number: DE-TEVA-790149GER

PATIENT
  Sex: Male

DRUGS (2)
  1. MYLEPSINUM [Suspect]
     Active Substance: PRIMIDONE
     Dosage: (2-0-0)
     Route: 048
     Dates: start: 20170718
  2. MYLEPSINUM [Suspect]
     Active Substance: PRIMIDONE
     Dosage: TAKEN SOME TIME AGO WITH PRESCRIBED DOSAGE OF 2-0-2
     Route: 048

REACTIONS (1)
  - Seizure [Unknown]

NARRATIVE: CASE EVENT DATE: 20170718
